FAERS Safety Report 8630982 (Version 2)
Quarter: 2012Q4

REPORT INFORMATION
  Report Type: 
  Country: GB (occurrence: GB)
  Receive Date: 20120622
  Receipt Date: 20120926
  Transmission Date: 20130627
  Serious: Yes (Other)
  Sender: FDA-Public Use
  Company Number: PHHY2012GB052367

PATIENT
  Age: 31 Year
  Sex: Female

DRUGS (2)
  1. HALOPERIDOL [Suspect]
     Indication: ANXIETY
     Dosage: 0.5 mg, UNK
     Route: 048
     Dates: start: 201201
  2. MIRTAZAPINE [Suspect]
     Indication: DEPRESSION
     Dosage: 30 mg, UNK
     Route: 048
     Dates: start: 2006

REACTIONS (2)
  - Gestational diabetes [Recovered/Resolved]
  - Maternal exposure during pregnancy [Unknown]
